FAERS Safety Report 25441124 (Version 3)
Quarter: 2025Q4

REPORT INFORMATION
  Report Type: Spontaneous
  Country: US (occurrence: None)
  Receive Date: 20250616
  Receipt Date: 20251215
  Transmission Date: 20260117
  Serious: No
  Sender: UCB
  Company Number: US-UCBSA-2025015727

PATIENT
  Age: 35 Year
  Weight: 92 kg

DRUGS (1)
  1. BIMZELX [Suspect]
     Active Substance: BIMEKIZUMAB-BKZX
     Indication: Hidradenitis
     Dosage: 320 MILLIGRAM, EV 2 WEEKS(QOW)

REACTIONS (9)
  - Headache [Recovered/Resolved]
  - Lip dry [Unknown]
  - Dry mouth [Unknown]
  - Mouth haemorrhage [Unknown]
  - Acne [Unknown]
  - Candida infection [Unknown]
  - Hidradenitis [Unknown]
  - Adverse drug reaction [Unknown]
  - Product dose omission issue [Unknown]
